FAERS Safety Report 4629362-7 (Version None)
Quarter: 2005Q2

REPORT INFORMATION
  Report Type: 
  Country: None (occurrence: None)
  Receive Date: 20050405
  Receipt Date: 20050323
  Transmission Date: 20051028
  Serious: Yes (Life-Threatening, Hospitalization, Other)
  Sender: FDA-Public Use
  Company Number: 2005040623

PATIENT
  Age: 54 Year
  Sex: Female
  Weight: 67 kg

DRUGS (11)
  1. CLINDAMYCIN PHOSPHATE [Suspect]
     Indication: WOUND INFECTION
     Dosage: 1200 MG (600 MG, 2 IN 1 D), INTRAVENOUS
     Route: 042
     Dates: start: 20030812, end: 20030818
  2. CEFAZOLIN SODIUM [Suspect]
     Indication: WOUND INFECTION
     Dosage: 2 GRAM (1 GRAM, BID), INTRAVENOUS
     Route: 042
     Dates: start: 20030808, end: 20030812
  3. CEFOZOPRAN HYDROCHLORIDE (CEFOZOPRAN HYDROCHLORIDE) [Suspect]
     Indication: WOUND INFECTION
     Dosage: 2 GRAM (1 GRAM, 2 IN 1 D), INTRAVENOUS
     Route: 042
     Dates: start: 20030812, end: 20030814
  4. TIENAM (CILASTATIN, IMIPENEM) [Suspect]
     Indication: WOUND INFECTION STAPHYLOCOCCAL
     Dosage: 1 GRAM (0.5 GRAM, 2 IN 1 D), INTRAVENOUS
     Route: 042
     Dates: start: 20030814, end: 20030820
  5. GENTAMICIN SULFATE [Suspect]
     Indication: WOUND INFECTION STAPHYLOCOCCAL
     Dosage: 80 MG (40 MG, 2 IN 1 D), INTRAVENOUS
     Route: 042
     Dates: start: 20030818, end: 20030820
  6. TEICOPLANIN (TEICOPLANIN) [Suspect]
     Indication: WOUND INFECTION STAPHYLOCOCCAL
     Dosage: 200 MG (200 MG, 1 IN 1D), INTRAVENOUS
     Route: 042
     Dates: start: 20030821, end: 20030907
  7. BETAMETHASONE [Concomitant]
  8. CARBAZOCHROME SODIUM SULFONATE (CARBAZOCHROME SODIUM SULFONATE) [Concomitant]
  9. TRANEXAMIC ACID (TRANEXAMIC ACID) [Concomitant]
  10. GLYCEOL (FRUCTOSE, GLYCEROL) [Concomitant]
  11. FAMOTIDINE [Concomitant]

REACTIONS (9)
  - ACUTE RESPIRATORY DISTRESS SYNDROME [None]
  - CLOSTRIDIUM COLITIS [None]
  - DISSEMINATED INTRAVASCULAR COAGULATION [None]
  - GENERAL PHYSICAL HEALTH DETERIORATION [None]
  - MEGACOLON [None]
  - PNEUMONIA [None]
  - SEPTIC SHOCK [None]
  - STAPHYLOCOCCAL ABSCESS [None]
  - WOUND INFECTION STAPHYLOCOCCAL [None]
